FAERS Safety Report 22882389 (Version 4)
Quarter: 2024Q4

REPORT INFORMATION
  Report Type: Spontaneous
  Country: US (occurrence: US)
  Receive Date: 20230830
  Receipt Date: 20241118
  Transmission Date: 20250114
  Serious: Yes (Death, Other)
  Sender: PFIZER
  Company Number: US-PFIZER INC-202300286891

PATIENT
  Age: 91 Year
  Sex: Male

DRUGS (1)
  1. VYNDAMAX [Suspect]
     Active Substance: TAFAMIDIS
     Indication: Acquired ATTR amyloidosis
     Dosage: 61 MG

REACTIONS (4)
  - Death [Fatal]
  - Cerebrovascular accident [Unknown]
  - Dysphonia [Unknown]
  - Vocal cord disorder [Unknown]

NARRATIVE: CASE EVENT DATE: 20241020
